FAERS Safety Report 5397952-2 (Version None)
Quarter: 2007Q3

REPORT INFORMATION
  Report Type: 
  Country: None (occurrence: None)
  Receive Date: 20070726
  Receipt Date: 20070717
  Transmission Date: 20080115
  Serious: Yes (Life-Threatening, Hospitalization)
  Sender: FDA-Public Use
  Company Number: GB-SANOFI-SYNTHELABO-A01200707913

PATIENT
  Age: 55 Year
  Sex: Female

DRUGS (7)
  1. PREDNISOLONE [Concomitant]
     Indication: BACTERAEMIA
     Dosage: 40 MG
     Route: 048
     Dates: start: 20070307
  2. CLARITHROMYCIN [Concomitant]
     Indication: BACTERAEMIA
     Dosage: 500 MG
     Route: 048
     Dates: start: 20070306, end: 20070309
  3. CHLORPHENIRAMINE MALEATE [Concomitant]
     Indication: PRURITUS
     Dosage: 4 MG
     Route: 048
     Dates: start: 20070304, end: 20070312
  4. AUGMENTIN '125' [Concomitant]
     Indication: BACTERAEMIA
     Dosage: 1.2 G
     Route: 042
     Dates: start: 20070228, end: 20070304
  5. HYDROXYCHLOROQUINE SULFATE [Suspect]
     Indication: NEPHRITIS
     Dosage: 200 MG
     Route: 048
     Dates: start: 20070306, end: 20070321
  6. HYDROXYCHLOROQUINE SULFATE [Suspect]
     Indication: SYSTEMIC LUPUS ERYTHEMATOSUS
     Dosage: 200 MG
     Route: 048
     Dates: start: 20070306, end: 20070321
  7. TERAZOSIN HCL [Concomitant]
     Dosage: 4.5 G
     Route: 042
     Dates: start: 20070307, end: 20070312

REACTIONS (1)
  - TOXIC EPIDERMAL NECROLYSIS [None]
